FAERS Safety Report 9393830 (Version 1)
Quarter: 2013Q3

REPORT INFORMATION
  Report Type: Spontaneous
  Country: SE (occurrence: SE)
  Receive Date: 20130710
  Receipt Date: 20130710
  Transmission Date: 20140515
  Serious: Yes (Hospitalization)
  Sender: FDA-Public Use
  Company Number: SE-PFIZER INC-2013202644

PATIENT
  Age: 87 Year
  Sex: Male

DRUGS (19)
  1. RAMIPRIL [Suspect]
     Dosage: 1.5 MG, DAILY
  2. SPIRONOLACTONE [Suspect]
     Dosage: UNK
     Dates: start: 20130202
  3. FURIX [Suspect]
     Dosage: 80 MG, DAILY
  4. ALLOPURINOL [Suspect]
     Dosage: 200 MG, DAILY
  5. SPIRIVA [Concomitant]
     Dosage: UNK
  6. OMEPRAZOLE [Concomitant]
     Dosage: UNK
  7. BISOPROLOL [Concomitant]
     Dosage: UNK
  8. ZOPICLONE [Concomitant]
     Dosage: UNK
  9. FOLACIN [Concomitant]
     Dosage: UNK
  10. CLOPIDOGREL [Concomitant]
     Dosage: UNK
  11. PANODIL [Concomitant]
     Dosage: UNK
  12. BEHEPAN [Concomitant]
     Dosage: UNK
  13. IMDUR [Concomitant]
     Dosage: UNK
  14. TROMBYL [Concomitant]
     Dosage: UNK
  15. PROSCAR [Concomitant]
     Dosage: UNK
  16. LACTULOSE [Concomitant]
     Dosage: UNK
  17. ACETYLCYSTEINE [Concomitant]
     Dosage: UNK
  18. SIFROL [Concomitant]
     Dosage: UNK
  19. GLYTRIN [Concomitant]
     Dosage: UNK

REACTIONS (4)
  - Renal failure acute [Unknown]
  - Blood creatinine increased [Unknown]
  - Dehydration [Unknown]
  - Malaise [Unknown]
